FAERS Safety Report 4453155-7 (Version None)
Quarter: 2004Q3

REPORT INFORMATION
  Report Type: 
  Country: None (occurrence: None)
  Receive Date: 20040917
  Receipt Date: 20040915
  Transmission Date: 20050211
  Serious: Yes (Other)
  Sender: FDA-Public Use
  Company Number: 04-09-1297

PATIENT
  Age: 71 Year
  Sex: Male

DRUGS (1)
  1. VERAPAMIL HYDROCHLORIDE [Suspect]
     Indication: CLUSTER HEADACHE
     Dosage: 120-480MG QD ORAL
     Route: 048
     Dates: start: 20001201

REACTIONS (3)
  - CONDITION AGGRAVATED [None]
  - HEADACHE [None]
  - LYMPHOMATOID PAPULOSIS [None]
